FAERS Safety Report 8929317 (Version 1)
Quarter: 2012Q4

REPORT INFORMATION
  Report Type: Report from Study
  Country: AT (occurrence: AT)
  Receive Date: 20121127
  Receipt Date: 20121127
  Transmission Date: 20130627
  Serious: Yes (Death)
  Sender: FDA-Public Use
  Company Number: AT-ABBOTT-12P-009-1013975-00

PATIENT
  Age: 78 Year
  Sex: Male
  Weight: 109 kg

DRUGS (25)
  1. ZEMPLAR [Suspect]
     Indication: HYPERPARATHYROIDISM
     Route: 042
     Dates: start: 20101021, end: 20101220
  2. ZEMPLAR [Suspect]
     Dates: start: 20101221, end: 20110207
  3. ZEMPLAR [Suspect]
     Dates: start: 20110208, end: 20120706
  4. TEBOFORTAN [Concomitant]
     Indication: PRODUCT USED FOR UNKNOWN INDICATION
     Dosage: 80 mg daily
     Route: 048
     Dates: end: 20120706
  5. DIGIMERCK [Concomitant]
     Indication: PRODUCT USED FOR UNKNOWN INDICATION
     Dosage: 0.07 mg daily
     Route: 048
     Dates: end: 20120706
  6. EUTHYROX [Concomitant]
     Indication: PRODUCT USED FOR UNKNOWN INDICATION
     Dosage: 75 mcg daily
     Route: 048
     Dates: end: 20120706
  7. ROCALTROL [Concomitant]
     Indication: PRODUCT USED FOR UNKNOWN INDICATION
     Dosage: 0.50 mcg daily
     Route: 048
     Dates: end: 20120706
  8. LASIX [Concomitant]
     Indication: PRODUCT USED FOR UNKNOWN INDICATION
     Dosage: 250 mg daily
     Route: 048
     Dates: end: 20120706
  9. DAFLON [Concomitant]
     Indication: PRODUCT USED FOR UNKNOWN INDICATION
     Dosage: 500 mg daily
     Route: 048
     Dates: end: 20120706
  10. VITARENAL [Concomitant]
     Indication: PRODUCT USED FOR UNKNOWN INDICATION
     Route: 048
     Dates: end: 20120706
  11. NEUROBIONFORTE COMBINATION [Concomitant]
     Indication: PRODUCT USED FOR UNKNOWN INDICATION
     Route: 048
     Dates: end: 20120706
  12. SORTIS [Concomitant]
     Indication: PRODUCT USED FOR UNKNOWN INDICATION
     Dosage: 10 mg daily
     Route: 048
     Dates: end: 20120706
  13. PANTOLOC [Concomitant]
     Indication: PRODUCT USED FOR UNKNOWN INDICATION
     Dosage: 40 mg daily
     Route: 048
     Dates: end: 20120706
  14. LOFTYL [Concomitant]
     Indication: PRODUCT USED FOR UNKNOWN INDICATION
     Dosage: 600 mg daily
     Route: 048
     Dates: end: 20120706
  15. ATACAND [Concomitant]
     Indication: PRODUCT USED FOR UNKNOWN INDICATION
     Dosage: 8 mg daily
     Route: 048
     Dates: end: 20120706
  16. CONCOR [Concomitant]
     Indication: PRODUCT USED FOR UNKNOWN INDICATION
     Dosage: 2.5 mg daily
     Route: 048
     Dates: end: 20120706
  17. ISOPTIN [Concomitant]
     Indication: PRODUCT USED FOR UNKNOWN INDICATION
     Dosage: 80 mg daily
     Route: 048
     Dates: end: 20120706
  18. LOVENOX [Concomitant]
     Indication: PRODUCT USED FOR UNKNOWN INDICATION
     Dosage: 160 mg daily, at each dialysis
     Route: 058
     Dates: end: 20120706
  19. PARACODEINE [Concomitant]
     Indication: PRODUCT USED FOR UNKNOWN INDICATION
     Dosage: Drops
     Route: 060
     Dates: end: 20120706
  20. INSULATARD [Concomitant]
     Indication: PRODUCT USED FOR UNKNOWN INDICATION
     Dosage: (2 x 25) daily
     Route: 058
     Dates: end: 20120706
  21. NOVORAPID [Concomitant]
     Indication: PRODUCT USED FOR UNKNOWN INDICATION
     Dosage: 3 IE daily
     Route: 058
     Dates: end: 20120706
  22. ERYPO [Concomitant]
     Indication: PRODUCT USED FOR UNKNOWN INDICATION
     Dosage: 10000 IE daily, once a week
     Route: 042
     Dates: end: 20120405
  23. ERYPO [Concomitant]
     Route: 042
     Dates: start: 20110406, end: 20120706
  24. THROMBO ASS [Concomitant]
     Indication: PRODUCT USED FOR UNKNOWN INDICATION
     Dosage: 100 mg daily
     Route: 048
     Dates: start: 20110407, end: 20120706
  25. VENOFER [Concomitant]
     Indication: PRODUCT USED FOR UNKNOWN INDICATION
     Dosage: 20 mg daily, once a week
     Route: 042
     Dates: start: 20120406, end: 20120706

REACTIONS (1)
  - Cardiac failure [Fatal]
